FAERS Safety Report 9984199 (Version 1)
Quarter: 2014Q1

REPORT INFORMATION
  Report Type: Report from Study
  Country: US (occurrence: US)
  Receive Date: 20140307
  Receipt Date: 20140307
  Transmission Date: 20141002
  Serious: No
  Sender: FDA-Public Use
  Company Number: US-ABBVIE-13P-163-1184278-00

PATIENT
  Age: 62 Year
  Sex: Female
  Weight: 113.5 kg

DRUGS (9)
  1. HUMIRA [Suspect]
     Indication: COLITIS ULCERATIVE
     Route: 058
     Dates: start: 20131024
  2. LIALDA [Concomitant]
     Indication: COLITIS ULCERATIVE
  3. PREDNISONE [Concomitant]
     Indication: COLITIS ULCERATIVE
  4. MULTIVITAMIN [Concomitant]
     Indication: VITAMIN SUPPLEMENTATION
  5. VITAMIN B COMPLEX [Concomitant]
     Indication: VITAMIN SUPPLEMENTATION
  6. HYDROCODONE [Concomitant]
     Indication: ABDOMINAL PAIN UPPER
  7. HYDROCODONE [Concomitant]
     Indication: COLITIS ULCERATIVE
  8. DIAZEPAM [Concomitant]
     Indication: ABDOMINAL PAIN UPPER
  9. DIAZEPAM [Concomitant]
     Indication: COLITIS ULCERATIVE

REACTIONS (7)
  - Decreased appetite [Not Recovered/Not Resolved]
  - Abdominal pain upper [Not Recovered/Not Resolved]
  - Abdominal discomfort [Not Recovered/Not Resolved]
  - Dyspepsia [Not Recovered/Not Resolved]
  - Diarrhoea [Not Recovered/Not Resolved]
  - Nausea [Not Recovered/Not Resolved]
  - Drug effect incomplete [Not Recovered/Not Resolved]
